FAERS Safety Report 5316720-0 (Version None)
Quarter: 2007Q2

REPORT INFORMATION
  Report Type: 
  Country: None (occurrence: None)
  Receive Date: 20070501
  Receipt Date: 20070501
  Transmission Date: 20071010
  Serious: No
  Sender: FDA-Public Use
  Company Number: None

PATIENT

DRUGS (1)
  1. LUNESTA [Suspect]

REACTIONS (5)
  - AMNESIA [None]
  - FACE INJURY [None]
  - IMPAIRED DRIVING ABILITY [None]
  - MEDICATION ERROR [None]
  - ROAD TRAFFIC ACCIDENT [None]
